FAERS Safety Report 5668874-4 (Version None)
Quarter: 2008Q1

REPORT INFORMATION
  Report Type: 
  Country: None (occurrence: None)
  Receive Date: 20080317
  Receipt Date: 20080307
  Transmission Date: 20080703
  Serious: Yes (Other)
  Sender: FDA-Public Use
  Company Number: US-BAYER-200816260NA

PATIENT
  Age: 32 Year
  Sex: Female
  Weight: 95 kg

DRUGS (1)
  1. MAGNEVIST SINGLE [Suspect]
     Indication: NUCLEAR MAGNETIC RESONANCE IMAGING
     Dosage: UNIT DOSE: 20 ML
     Route: 042
     Dates: start: 20080226, end: 20080226

REACTIONS (6)
  - ASTHENIA [None]
  - DYSPNOEA [None]
  - HYPERSENSITIVITY [None]
  - NAUSEA [None]
  - PALLOR [None]
  - VOMITING [None]
